FAERS Safety Report 6765080-7 (Version None)
Quarter: 2010Q2

REPORT INFORMATION
  Report Type: 
  Country: None (occurrence: None)
  Receive Date: 20100609
  Receipt Date: 20100609
  Transmission Date: 20101027
  Serious: Yes (Hospitalization)
  Sender: FDA-Public Use
  Company Number: None

PATIENT
  Age: 55 Year
  Sex: Male
  Weight: 49.8957 kg

DRUGS (2)
  1. ENOXAPARIN [Suspect]
     Indication: ATRIAL FIBRILLATION
     Dosage: 100 MG BID SQ
     Route: 058
     Dates: start: 20100530, end: 20100606
  2. WARFARIN [Suspect]
     Dosage: 5 MG EVERY DAY PO
     Route: 048
     Dates: start: 20100530, end: 20100606

REACTIONS (1)
  - ABDOMINAL WALL HAEMATOMA [None]
